FAERS Safety Report 20865832 (Version 2)
Quarter: 2022Q3

REPORT INFORMATION
  Report Type: Report from Study
  Country: PR (occurrence: PR)
  Receive Date: 20220524
  Receipt Date: 20220714
  Transmission Date: 20221027
  Serious: Yes (Hospitalization, Other)
  Sender: FDA-Public Use
  Company Number: PR-ABBVIE-21K-131-3762571-00

PATIENT
  Age: 48 Year
  Sex: Female
  Weight: 95.340 kg

DRUGS (5)
  1. HUMIRA [Suspect]
     Active Substance: ADALIMUMAB
     Indication: Psoriatic arthropathy
     Route: 058
     Dates: start: 20200331, end: 202202
  2. HUMIRA [Suspect]
     Active Substance: ADALIMUMAB
     Route: 058
     Dates: start: 2022
  3. TOZINAMERAN [Concomitant]
     Active Substance: TOZINAMERAN
     Indication: COVID-19 immunisation
     Route: 030
     Dates: start: 20210301, end: 20210301
  4. TOZINAMERAN [Concomitant]
     Active Substance: TOZINAMERAN
     Route: 030
     Dates: start: 20210323, end: 20210323
  5. TOZINAMERAN [Concomitant]
     Active Substance: TOZINAMERAN
     Route: 030
     Dates: start: 20210825, end: 20210825

REACTIONS (3)
  - Osteoarthritis [Recovered/Resolved]
  - Arthralgia [Recovered/Resolved]
  - Gait disturbance [Not Recovered/Not Resolved]

NARRATIVE: CASE EVENT DATE: 20210101
